FAERS Safety Report 5046838-1 (Version None)
Quarter: 2006Q3

REPORT INFORMATION
  Report Type: 
  Country: None (occurrence: None)
  Receive Date: 20060705
  Receipt Date: 20060705
  Transmission Date: 20061208
  Serious: Yes (Other)
  Sender: FDA-Public Use
  Company Number: None

PATIENT
  Age: 59 Year
  Sex: Female

DRUGS (3)
  1. ZOCOR [Suspect]
     Dosage: 40MG QHS PO
     Route: 048
     Dates: start: 20060324, end: 20060420
  2. CALCIUM WITH VITAMIN D [Concomitant]
  3. MULTI-VITAMIN [Concomitant]

REACTIONS (2)
  - INSOMNIA [None]
  - MYALGIA [None]
